FAERS Safety Report 5882380-3 (Version None)
Quarter: 2008Q3

REPORT INFORMATION
  Report Type: 
  Country: None (occurrence: None)
  Receive Date: 20080913
  Receipt Date: 20080801
  Transmission Date: 20090109
  Serious: Yes (Hospitalization)
  Sender: FDA-Public Use
  Company Number: US-ABBOTT-08P-163-0468411-00

PATIENT
  Sex: Male
  Weight: 88.076 kg

DRUGS (3)
  1. HUMIRA [Suspect]
     Indication: PSORIATIC ARTHROPATHY
     Dates: start: 20071201
  2. SULFASALAZINE [Concomitant]
     Indication: PSORIATIC ARTHROPATHY
     Route: 048
     Dates: start: 20071008
  3. PREDNISONE TAB [Concomitant]
     Indication: PSORIATIC ARTHROPATHY
     Dosage: 10-20 MG

REACTIONS (1)
  - DIVERTICULITIS [None]
